FAERS Safety Report 4973789-0 (Version None)
Quarter: 2006Q2

REPORT INFORMATION
  Report Type: 
  Country: None (occurrence: None)
  Receive Date: 20060414
  Receipt Date: 20060125
  Transmission Date: 20061013
  Serious: Yes (Life-Threatening, Hospitalization)
  Sender: FDA-Public Use
  Company Number: US-MERCK-0601USA03196

PATIENT
  Sex: Male

DRUGS (1)
  1. VIOXX [Suspect]
     Indication: LIMB INJURY
     Route: 048
     Dates: start: 20030101

REACTIONS (13)
  - ABDOMINAL PAIN [None]
  - ANXIETY [None]
  - CONSTIPATION [None]
  - DIARRHOEA [None]
  - DYSPEPSIA [None]
  - EMOTIONAL DISTRESS [None]
  - GASTROINTESTINAL HAEMORRHAGE [None]
  - GROIN PAIN [None]
  - HAEMATEMESIS [None]
  - HAEMATOCHEZIA [None]
  - NAUSEA [None]
  - RECTAL HAEMORRHAGE [None]
  - STRESS [None]
